FAERS Safety Report 21924181 (Version 1)
Quarter: 2023Q1

REPORT INFORMATION
  Report Type: Other
  Country: AT (occurrence: AT)
  Receive Date: 20230130
  Receipt Date: 20230130
  Transmission Date: 20230417
  Serious: Yes (Other)
  Sender: FDA-Public Use
  Company Number: AT-DENTSPLY-2023SCDP000017

PATIENT
  Age: 52 Year
  Sex: Male
  Weight: 78 kg

DRUGS (3)
  1. XYLOCAINE [Suspect]
     Active Substance: LIDOCAINE HYDROCHLORIDE
     Indication: Endoscopy upper gastrointestinal tract
     Dosage: UNK
     Dates: start: 20191204, end: 20191204
  2. LIDOCAINE [Suspect]
     Active Substance: LIDOCAINE
     Indication: Endoscopy upper gastrointestinal tract
     Dosage: CATHEJELL 0.2 MG LIDOCAINE
     Dates: start: 20200107, end: 20200107
  3. FENOTEROL HYDROBROMIDE\IPRATROPIUM BROMIDE [Concomitant]
     Active Substance: FENOTEROL HYDROBROMIDE\IPRATROPIUM BROMIDE
     Indication: Product used for unknown indication
     Dosage: UNK

REACTIONS (11)
  - Gastrointestinal mucosal disorder [Recovered/Resolved]
  - Dyspepsia [Recovered/Resolved]
  - Histamine intolerance [None]
  - Weight decreased [Recovered/Resolved]
  - Infection [Recovered/Resolved]
  - Reflux gastritis [Recovered/Resolved]
  - Oesophageal pain [Recovered/Resolved]
  - Erythema [Recovered/Resolved]
  - Respiratory distress [None]
  - Gastritis [Recovered/Resolved]
  - Blood pressure increased [None]

NARRATIVE: CASE EVENT DATE: 20191204
